FAERS Safety Report 7105055-1 (Version None)
Quarter: 2010Q4

REPORT INFORMATION
  Report Type: 
  Country: None (occurrence: None)
  Receive Date: 20101116
  Receipt Date: 20080131
  Transmission Date: 20110411
  Serious: No
  Sender: FDA-Public Use
  Company Number: US-KINGPHARMUSA00001-K200800153

PATIENT
  Sex: Female
  Weight: 100.68 kg

DRUGS (6)
  1. CORGARD [Suspect]
     Indication: HEART RATE IRREGULAR
     Dosage: 80 MG, BID
  2. PRANDIN                            /00882701/ [Concomitant]
     Dates: end: 20080101
  3. METFORMIN HCL [Concomitant]
     Indication: DIABETES MELLITUS
     Dosage: UNK, UNK
  4. DIOVAN                             /01319601/ [Concomitant]
     Indication: DIABETES MELLITUS
  5. VYTORIN [Concomitant]
     Indication: HYPERCHOLESTEROLAEMIA
  6. ASPIRIN [Concomitant]

REACTIONS (3)
  - DRUG INEFFECTIVE [None]
  - HEART RATE INCREASED [None]
  - INSOMNIA [None]
